FAERS Safety Report 19139926 (Version 1)
Quarter: 2021Q2

REPORT INFORMATION
  Report Type: Spontaneous
  Country: US (occurrence: US)
  Receive Date: 20210415
  Receipt Date: 20210415
  Transmission Date: 20210717
  Serious: No
  Sender: FDA-Public Use
  Company Number: US-PFIZER INC-2016545508

PATIENT
  Age: 63 Year
  Sex: Female

DRUGS (10)
  1. LYRICA [Suspect]
     Active Substance: PREGABALIN
     Indication: PAIN
  2. LYRICA [Suspect]
     Active Substance: PREGABALIN
     Indication: FIBROMYALGIA
     Dosage: 150 MG, 3X/DAY
     Route: 048
  3. LISINOPRIL. [Concomitant]
     Active Substance: LISINOPRIL
     Dosage: UNK
  4. VITAMIN D3 [Concomitant]
     Active Substance: CHOLECALCIFEROL
     Dosage: UNK
  5. LYRICA [Suspect]
     Active Substance: PREGABALIN
     Indication: SPINAL DISORDER
  6. HYDROCODONE [Concomitant]
     Active Substance: HYDROCODONE
     Dosage: UNK
  7. SULINDAC. [Concomitant]
     Active Substance: SULINDAC
     Dosage: UNK
  8. NEFAZODONE [Concomitant]
     Active Substance: NEFAZODONE
     Dosage: UNK
  9. ALBUTEROL [SALBUTAMOL] [Concomitant]
     Active Substance: ALBUTEROL
     Dosage: UNK
  10. METHOCARBAMOL. [Concomitant]
     Active Substance: METHOCARBAMOL
     Dosage: UNK

REACTIONS (1)
  - Sensitivity to weather change [Unknown]
